FAERS Safety Report 6680080-3 (Version None)
Quarter: 2010Q2

REPORT INFORMATION
  Report Type: 
  Country: None (occurrence: None)
  Receive Date: 20100409
  Receipt Date: 20100324
  Transmission Date: 20101027
  Serious: Yes (Hospitalization)
  Sender: FDA-Public Use
  Company Number: DSA_42884_2010

PATIENT
  Age: 77 Year
  Sex: Male

DRUGS (9)
  1. DILTIAZEM [Suspect]
     Indication: MYOCARDIAL ISCHAEMIA
     Dosage: (DF ORAL)
     Route: 048
     Dates: start: 20100116, end: 20100213
  2. DELORAZEPAM [Concomitant]
  3. ACETYLSALICYLIC ACID [Concomitant]
  4. ESOMEPRAZOLE [Concomitant]
  5. MONOCINQUE [Concomitant]
  6. TAMSULOSIN HCL [Concomitant]
  7. SIMVASTATIN [Concomitant]
  8. FUROSEMIDE [Concomitant]
  9. PREV MEDS [Concomitant]

REACTIONS (1)
  - DRUG ERUPTION [None]
